FAERS Safety Report 4551478-4 (Version None)
Quarter: 2005Q1

REPORT INFORMATION
  Report Type: 
  Country: None (occurrence: None)
  Receive Date: 20050111
  Receipt Date: 20050106
  Transmission Date: 20050727
  Serious: Yes (Life-Threatening, Hospitalization, Other)
  Sender: FDA-Public Use
  Company Number: HQWYE424706JAN05

PATIENT
  Sex: Female

DRUGS (3)
  1. RAPAMUNE [Suspect]
     Indication: PROPHYLAXIS AGAINST TRANSPLANT REJECTION
     Dosage: ORAL
     Route: 048
     Dates: start: 20041109, end: 20041211
  2. MYCOPHENOLATE MOFETIL (MYCOPHENOLATE MOFETIL,) [Suspect]
  3. CYCLOSPORINE [Concomitant]

REACTIONS (3)
  - HYPOTENSION [None]
  - INFLUENZA LIKE ILLNESS [None]
  - PANCYTOPENIA [None]
